FAERS Safety Report 12231536 (Version 3)
Quarter: 2016Q2

REPORT INFORMATION
  Report Type: Spontaneous
  Country: US (occurrence: US)
  Receive Date: 20160401
  Receipt Date: 20160615
  Transmission Date: 20160815
  Serious: Yes (Death, Hospitalization)
  Sender: FDA-Public Use
  Company Number: US-JNJFOC-20160319879

PATIENT
  Age: 39 Year
  Sex: Male

DRUGS (1)
  1. XARELTO [Suspect]
     Active Substance: RIVAROXABAN
     Indication: PRODUCT USED FOR UNKNOWN INDICATION
     Route: 048
     Dates: start: 20140313, end: 20140317

REACTIONS (6)
  - Renal haemorrhage [Unknown]
  - Epistaxis [Unknown]
  - Arrhythmia [Fatal]
  - Rectal haemorrhage [Unknown]
  - Respiratory failure [Fatal]
  - Internal haemorrhage [Unknown]

NARRATIVE: CASE EVENT DATE: 20140313
